FAERS Safety Report 7709454-6 (Version None)
Quarter: 2011Q3

REPORT INFORMATION
  Report Type: 
  Country: None (occurrence: None)
  Receive Date: 20110825
  Receipt Date: 20110816
  Transmission Date: 20111222
  Serious: Yes (Hospitalization, Other)
  Sender: FDA-Public Use
  Company Number: US-BAYER-201036421NA

PATIENT
  Sex: Female
  Weight: 68 kg

DRUGS (10)
  1. LORAZEPAM [Concomitant]
     Indication: ANXIETY
  2. PROVENTIL [Concomitant]
     Route: 006
  3. PRILOSEC [Concomitant]
  4. TYLENOL PM [Concomitant]
     Dosage: UNK UNK, PRN
  5. BELLADONNA AND PHENOBARBITONE [Concomitant]
  6. SUCRALFATE [Concomitant]
     Dosage: 16 MG, UNK
  7. NEXIUM [Concomitant]
  8. TRAMADOL/ACETAMINOPHEN 37.5MG/325MG [Concomitant]
  9. YASMIN [Suspect]
     Route: 048
     Dates: start: 20030801, end: 20070615
  10. ADDERALL 5 [Concomitant]

REACTIONS (4)
  - ABDOMINAL PAIN [None]
  - CHOLELITHIASIS [None]
  - GALLBLADDER DISORDER [None]
  - CHOLECYSTITIS ACUTE [None]
